FAERS Safety Report 4656462-8 (Version None)
Quarter: 2005Q2

REPORT INFORMATION
  Report Type: 
  Country: None (occurrence: None)
  Receive Date: 20050504
  Receipt Date: 20050422
  Transmission Date: 20051028
  Serious: Yes (Hospitalization)
  Sender: FDA-Public Use
  Company Number: 05P-062-0298563-00

PATIENT
  Age: 49 Year
  Sex: Male
  Weight: 80 kg

DRUGS (2)
  1. AKINETON [Suspect]
     Dosage: SEE IMAGE
     Route: 048
     Dates: end: 20050401
  2. AKINETON [Suspect]
     Dosage: SEE IMAGE
     Route: 048
     Dates: end: 20050401

REACTIONS (3)
  - CONDITION AGGRAVATED [None]
  - DIARRHOEA [None]
  - SCHIZOPHRENIA [None]
